FAERS Safety Report 10183711 (Version 1)
Quarter: 2014Q2

REPORT INFORMATION
  Report Type: Spontaneous
  Country: US (occurrence: US)
  Receive Date: 20140520
  Receipt Date: 20140520
  Transmission Date: 20141212
  Serious: No
  Sender: FDA-Public Use
  Company Number: US-ENDO PHARMACEUTICALS INC.-BUTL20140002

PATIENT
  Sex: Male

DRUGS (1)
  1. BUTALBITAL/ACETAMINOPHEN/CAFFEINE/CODEINE PHOSPHATE CAPSULES [Suspect]
     Indication: MIGRAINE
     Dosage: 1-2 CAPSULES
     Route: 048
     Dates: start: 2007

REACTIONS (3)
  - Nausea [Unknown]
  - Dizziness [Unknown]
  - Headache [Unknown]
